FAERS Safety Report 10590158 (Version 1)
Quarter: 2014Q4

REPORT INFORMATION
  Report Type: Spontaneous
  Country: US (occurrence: None)
  Receive Date: 20141117
  Receipt Date: 20141117
  Transmission Date: 20150529
  Serious: Yes (Other)
  Sender: FDA-Public Use
  Company Number: None

PATIENT
  Age: 54 Year
  Sex: Male
  Weight: 86.18 kg

DRUGS (2)
  1. DURAGESIC [Suspect]
     Active Substance: FENTANYL
     Dosage: 75, Q72, TRANSDERMAL
  2. TIZANIDINE (TIZANIDINE) [Suspect]
     Active Substance: TIZANIDINE

REACTIONS (2)
  - Drug hypersensitivity [None]
  - Device allergy [None]

NARRATIVE: CASE EVENT DATE: 20060123
